FAERS Safety Report 10051442 (Version 3)
Quarter: 2014Q2

REPORT INFORMATION
  Report Type: Spontaneous
  Country: FR (occurrence: FR)
  Receive Date: 20140401
  Receipt Date: 20140410
  Transmission Date: 20141212
  Serious: Yes (Congenital Anomaly)
  Sender: FDA-Public Use
  Company Number: FR-009507513-1111FRA00005B1

PATIENT
  Age: 1 Day
  Sex: Male
  Weight: 4.78 kg

DRUGS (5)
  1. SINGULAIR [Suspect]
     Dosage: 1 DF, QD
     Route: 064
     Dates: start: 20100820, end: 20110511
  2. EUPHILLIN TABLETS [Suspect]
     Dosage: 300 MG, QD
     Route: 064
     Dates: start: 20100820, end: 20110511
  3. BRICANYL [Suspect]
     Route: 064
     Dates: start: 20100820, end: 20110511
  4. FORADIL [Suspect]
     Route: 064
     Dates: start: 20100820, end: 20110511
  5. XYZALL [Suspect]
     Dosage: 5 MG, QD
     Route: 064
     Dates: start: 20100820, end: 20110511

REACTIONS (5)
  - Craniosynostosis [Not Recovered/Not Resolved]
  - Exophthalmos congenital [Not Recovered/Not Resolved]
  - Large for dates baby [Unknown]
  - Congenital anomaly [Unknown]
  - Foetal exposure during pregnancy [Unknown]
